FAERS Safety Report 20871494 (Version 3)
Quarter: 2022Q2

REPORT INFORMATION
  Report Type: Report from Study
  Country: US (occurrence: US)
  Receive Date: 20220525
  Receipt Date: 20220608
  Transmission Date: 20220721
  Serious: Yes (Hospitalization, Other)
  Sender: FDA-Public Use
  Company Number: US-BRISTOL-MYERS SQUIBB COMPANY-2022-042243

PATIENT
  Age: 63 Year
  Sex: Female
  Weight: 83.2 kg

DRUGS (2)
  1. NIVOLUMAB [Suspect]
     Active Substance: NIVOLUMAB
     Indication: Non-small cell lung cancer
     Route: 065
     Dates: start: 20211202, end: 20220211
  2. CABOZANTINIB [Suspect]
     Active Substance: CABOZANTINIB
     Indication: Non-small cell lung cancer
     Route: 065
     Dates: start: 20211202, end: 20220224

REACTIONS (3)
  - Encephalopathy [Not Recovered/Not Resolved]
  - Muscular weakness [Not Recovered/Not Resolved]
  - Urinary tract infection [Not Recovered/Not Resolved]

NARRATIVE: CASE EVENT DATE: 20220225
